FAERS Safety Report 23962581 (Version 2)
Quarter: 2024Q3

REPORT INFORMATION
  Report Type: Spontaneous
  Country: US (occurrence: US)
  Receive Date: 20240611
  Receipt Date: 20240710
  Transmission Date: 20241017
  Serious: No
  Sender: PFIZER
  Company Number: US-PFIZER INC-PV202400075793

PATIENT
  Age: 51 Year
  Sex: Female
  Weight: 70.748 kg

DRUGS (1)
  1. SIROLIMUS [Suspect]
     Active Substance: SIROLIMUS
     Indication: Lymphangioleiomyomatosis
     Dosage: 3 MG, 1X/DAY
     Route: 048
     Dates: start: 2017, end: 202308

REACTIONS (4)
  - Quality of life decreased [Unknown]
  - Dyspnoea [Unknown]
  - Acne [Unknown]
  - Weight increased [Unknown]
